FAERS Safety Report 21920144 (Version 3)
Quarter: 2023Q1

REPORT INFORMATION
  Report Type: Report from Study
  Country: AR (occurrence: None)
  Receive Date: 20230127
  Receipt Date: 20230329
  Transmission Date: 20230418
  Serious: Yes (Hospitalization)
  Sender: FDA-Public Use
  Company Number: AR-ROCHE-3145733

PATIENT
  Age: 23 Year
  Sex: Female
  Weight: 60 kg

DRUGS (30)
  1. OBINUTUZUMAB [Suspect]
     Active Substance: OBINUTUZUMAB
     Indication: Systemic lupus erythematosus
     Dosage: START DATE OF MOST RECENT DOSE OF STUDY DRUG PRIOR TO AE AND SAE WAS 02/JUN/2022 (11:00 AM TO 11:30
     Route: 042
     Dates: start: 20211130
  2. LAMOTRIGINE [Suspect]
     Active Substance: LAMOTRIGINE
     Indication: Product used for unknown indication
     Route: 048
     Dates: start: 20220715, end: 20220720
  3. OBINUTUZUMAB [Suspect]
     Active Substance: OBINUTUZUMAB
     Indication: Systemic lupus erythematosus
     Dosage: 4 MG/ML
     Route: 042
     Dates: start: 20221205
  4. CALCIUM CITRATE [Concomitant]
     Active Substance: CALCIUM CITRATE
     Route: 048
     Dates: start: 202012
  5. HYDROXYCHLOROQUINE [Concomitant]
     Active Substance: HYDROXYCHLOROQUINE
     Indication: Systemic lupus erythematosus
     Route: 048
     Dates: start: 202004, end: 20220721
  6. MYCOPHENOLATE MOFETIL [Concomitant]
     Active Substance: MYCOPHENOLATE MOFETIL
     Indication: Systemic lupus erythematosus
     Route: 048
     Dates: start: 202105, end: 20220721
  7. MEPREDNISONE [Concomitant]
     Active Substance: MEPREDNISONE
     Indication: Systemic lupus erythematosus
     Route: 048
     Dates: start: 20211020, end: 20220725
  8. MEPREDNISONE [Concomitant]
     Active Substance: MEPREDNISONE
     Route: 048
     Dates: start: 20220323, end: 20220725
  9. MEPREDNISONE [Concomitant]
     Active Substance: MEPREDNISONE
     Route: 048
     Dates: start: 20220726, end: 20220801
  10. MEPREDNISONE [Concomitant]
     Active Substance: MEPREDNISONE
     Route: 048
     Dates: start: 20220323, end: 20220725
  11. PREGABALIN [Concomitant]
     Active Substance: PREGABALIN
     Indication: Systemic lupus erythematosus
     Route: 048
     Dates: start: 202012
  12. ZOLPIDEM [Concomitant]
     Active Substance: ZOLPIDEM TARTRATE
     Route: 048
     Dates: start: 20220726
  13. RISPERIDONE [Concomitant]
     Active Substance: RISPERIDONE
     Route: 048
     Dates: start: 20220726
  14. JANSSEN COVID-19 VACCINE [Concomitant]
     Active Substance: AD26.COV2.S
     Indication: COVID-19 prophylaxis
     Route: 030
     Dates: start: 20210627, end: 20220627
  15. METHYLPREDNISOLONE [Concomitant]
     Active Substance: METHYLPREDNISOLONE
     Indication: Systemic lupus erythematosus
     Dosage: GIVEN FOR PROPHYLAXIS
     Route: 048
     Dates: start: 20220323, end: 20220721
  16. METHYLPREDNISOLONE [Concomitant]
     Active Substance: METHYLPREDNISOLONE
     Route: 042
     Dates: start: 20221220, end: 20221220
  17. METHYLPREDNISOLONE [Concomitant]
     Active Substance: METHYLPREDNISOLONE
     Route: 042
     Dates: start: 20221205, end: 20221205
  18. PREDNISONE [Concomitant]
     Active Substance: PREDNISONE
     Route: 048
     Dates: start: 20220323, end: 20220725
  19. PREDNISONE [Concomitant]
     Active Substance: PREDNISONE
     Route: 048
     Dates: start: 20220726, end: 20220801
  20. PREDNISONE [Concomitant]
     Active Substance: PREDNISONE
     Route: 048
     Dates: start: 20221026, end: 20221122
  21. PREDNISONE [Concomitant]
     Active Substance: PREDNISONE
     Route: 048
     Dates: start: 20221221, end: 20221223
  22. PREDNISONE [Concomitant]
     Active Substance: PREDNISONE
     Route: 048
     Dates: start: 20221123, end: 20221220
  23. PREDNISONE [Concomitant]
     Active Substance: PREDNISONE
     Route: 048
     Dates: start: 20221224, end: 20230104
  24. HYDROCORTISONE [Concomitant]
     Active Substance: HYDROCORTISONE
     Indication: Systemic lupus erythematosus
     Dosage: GIVEN FOR PROPHYLAXIS
     Route: 048
     Dates: start: 20220720, end: 20220725
  25. FLUOXETINE [Concomitant]
     Active Substance: FLUOXETINE HYDROCHLORIDE
     Route: 048
     Dates: start: 20220808
  26. PREDNISOLONE [Concomitant]
     Active Substance: PREDNISOLONE
     Route: 048
     Dates: start: 20221026
  27. ACETAMINOPHEN [Concomitant]
     Active Substance: ACETAMINOPHEN
     Route: 048
     Dates: start: 20221220, end: 20221220
  28. ACETAMINOPHEN [Concomitant]
     Active Substance: ACETAMINOPHEN
     Route: 048
     Dates: start: 20221205, end: 20221205
  29. DIPHENHYDRAMINE [Concomitant]
     Active Substance: DIPHENHYDRAMINE
     Route: 042
     Dates: start: 20221220, end: 20221220
  30. DIPHENHYDRAMINE [Concomitant]
     Active Substance: DIPHENHYDRAMINE
     Route: 042
     Dates: start: 20221205, end: 20221205

REACTIONS (2)
  - Drug eruption [Recovered/Resolved]
  - Infusion related reaction [Recovered/Resolved]

NARRATIVE: CASE EVENT DATE: 20220718
